FAERS Safety Report 11836227 (Version 2)
Quarter: 2015Q4

REPORT INFORMATION
  Report Type: Spontaneous
  Country: GB (occurrence: GB)
  Receive Date: 20151215
  Receipt Date: 20151215
  Transmission Date: 20160305
  Serious: Yes (Death)
  Sender: FDA-Public Use
  Company Number: GB-CELGENE-GBR-2015084154

PATIENT
  Age: 69 Year
  Sex: Female

DRUGS (5)
  1. DEXAMETHASONE. [Concomitant]
     Active Substance: DEXAMETHASONE
     Indication: PLASMA CELL MYELOMA
     Route: 065
     Dates: start: 20150714
  2. DEXAMETHASONE. [Concomitant]
     Active Substance: DEXAMETHASONE
     Indication: AMYLOIDOSIS
     Route: 065
     Dates: start: 201003, end: 201010
  3. POMALIDOMIDE [Suspect]
     Active Substance: POMALIDOMIDE
     Indication: PLASMA CELL MYELOMA
     Route: 048
     Dates: end: 201508
  4. POMALIDOMIDE [Suspect]
     Active Substance: POMALIDOMIDE
     Indication: AMYLOIDOSIS
     Route: 048
     Dates: start: 20150714
  5. DEXAMETHASONE. [Concomitant]
     Active Substance: DEXAMETHASONE
     Route: 065
     Dates: start: 201211, end: 201305

REACTIONS (2)
  - Death [Fatal]
  - Rash [Recovered/Resolved]

NARRATIVE: CASE EVENT DATE: 201508
